FAERS Safety Report 4591962-0 (Version None)
Quarter: 2005Q1

REPORT INFORMATION
  Report Type: 
  Country: None (occurrence: None)
  Receive Date: 20050222
  Receipt Date: 20041122
  Transmission Date: 20050727
  Serious: Yes (Other)
  Sender: FDA-Public Use
  Company Number: 2004121968

PATIENT
  Sex: Female

DRUGS (1)
  1. CELEBREX [Suspect]
     Indication: OSTEOARTHRITIS
     Dosage: 200 MG (200 MG, 1 IN 1 D)
     Dates: start: 20040901, end: 20040101

REACTIONS (3)
  - HAEMATEMESIS [None]
  - HAEMATOCHEZIA [None]
  - MUSCLE SPASMS [None]
